FAERS Safety Report 7375504-2 (Version None)
Quarter: 2011Q1

REPORT INFORMATION
  Report Type: 
  Country: None (occurrence: None)
  Receive Date: 20110325
  Receipt Date: 20110322
  Transmission Date: 20110831
  Serious: Yes (Other)
  Sender: FDA-Public Use
  Company Number: US-SANOFI-AVENTIS-2011SA017703

PATIENT
  Age: 58 Year
  Sex: Female

DRUGS (4)
  1. APIDRA [Suspect]
     Indication: TYPE 1 DIABETES MELLITUS
     Dosage: SLIDING SCALE AS NEEDED WITH MEALS
     Route: 065
     Dates: start: 20060101
  2. SOLOSTAR [Suspect]
     Indication: TYPE 1 DIABETES MELLITUS
     Dates: start: 20060101
  3. THYROID THERAPY [Concomitant]
  4. INSULIN DETEMIR [Concomitant]

REACTIONS (4)
  - HYPOGLYCAEMIA [None]
  - GLYCOSYLATED HAEMOGLOBIN INCREASED [None]
  - DRUG INEFFECTIVE [None]
  - DIABETIC COMA [None]
